FAERS Safety Report 9258916 (Version 2)
Quarter: 2014Q1

REPORT INFORMATION
  Report Type: Spontaneous
  Country: GB (occurrence: GB)
  Receive Date: 20130426
  Receipt Date: 20140107
  Transmission Date: 20141002
  Serious: Yes (Hospitalization, Disabling)
  Sender: FDA-Public Use
  Company Number: GB-GLAXOSMITHKLINE-B0875684A

PATIENT
  Age: 73 Year
  Sex: Female

DRUGS (2)
  1. POLIGRIP ULTRA [Suspect]
     Indication: PRODUCT USED FOR UNKNOWN INDICATION
  2. FLIXOTIDE [Suspect]
     Indication: PRODUCT USED FOR UNKNOWN INDICATION

REACTIONS (22)
  - Paraparesis [Unknown]
  - Immobile [Unknown]
  - Balance disorder [Unknown]
  - Dizziness [Unknown]
  - Paraesthesia [Unknown]
  - Fall [Unknown]
  - Dysaesthesia [Unknown]
  - Muscular weakness [Unknown]
  - Muscular weakness [Unknown]
  - Neuropathy peripheral [Unknown]
  - Psychiatric symptom [Unknown]
  - Blood copper decreased [Unknown]
  - Clonus [Unknown]
  - Pain in extremity [Unknown]
  - Hypoaesthesia [Unknown]
  - Muscle spasms [Unknown]
  - Hand deformity [Unknown]
  - Confusional state [Unknown]
  - Somnolence [Unknown]
  - Depressed level of consciousness [Unknown]
  - Ageusia [Unknown]
  - Cough [Unknown]
